APPROVED DRUG PRODUCT: CHLOROMYCETIN
Active Ingredient: CHLORAMPHENICOL
Strength: 1%
Dosage Form/Route: OINTMENT;OPHTHALMIC
Application: N050156 | Product #001
Applicant: PARKEDALE PHARMACEUTICALS INC
Approved: Approved Prior to Jan 1, 1982 | RLD: No | RS: No | Type: DISCN